FAERS Safety Report 18096811 (Version 1)
Quarter: 2020Q3

REPORT INFORMATION
  Report Type: Report from Study
  Country: DE (occurrence: DE)
  Receive Date: 20200731
  Receipt Date: 20200731
  Transmission Date: 20201103
  Serious: Yes (Hospitalization)
  Sender: FDA-Public Use
  Company Number: DE-SUN PHARMACEUTICAL INDUSTRIES LTD-2020RR-255637

PATIENT
  Age: 37 Year
  Sex: Male
  Weight: 115 kg

DRUGS (3)
  1. MTX LANTAREL [Concomitant]
     Indication: PSORIASIS
     Dosage: 17.5 MILLIGRAM, UNK
     Route: 058
     Dates: start: 20180403, end: 202007
  2. ALLOPURINOL. [Concomitant]
     Active Substance: ALLOPURINOL
     Indication: GOUT
     Dosage: 150 MILLIGRAM, UNK
     Route: 048
  3. ILUMETRI 100 MG, INJEKTIONSL?SUNG [Suspect]
     Active Substance: TILDRAKIZUMAB
     Indication: PSORIASIS
     Dosage: 100 MILLIGRAM, UNK
     Route: 058
     Dates: start: 201911, end: 202003

REACTIONS (1)
  - Ear injury [Recovered/Resolved]

NARRATIVE: CASE EVENT DATE: 20200313
